FAERS Safety Report 12289644 (Version 1)
Quarter: 2016Q2

REPORT INFORMATION
  Report Type: Spontaneous
  Country: US (occurrence: US)
  Receive Date: 20160421
  Receipt Date: 20160421
  Transmission Date: 20160815
  Serious: No
  Sender: FDA-Public Use
  Company Number: US-TEVA-621280USA

PATIENT
  Age: 45 Year
  Sex: Male
  Weight: 103.51 kg

DRUGS (2)
  1. CEFALEXIN [Suspect]
     Active Substance: CEPHALEXIN
     Indication: SKIN INFECTION
     Dates: start: 20151202, end: 20151209
  2. CEFALEXIN [Suspect]
     Active Substance: CEPHALEXIN
     Indication: SKIN INFECTION

REACTIONS (1)
  - Therapeutic response unexpected [Recovered/Resolved]

NARRATIVE: CASE EVENT DATE: 20151203
